FAERS Safety Report 24037190 (Version 1)
Quarter: 2024Q3

REPORT INFORMATION
  Report Type: Report from Study
  Country: CA (occurrence: CA)
  Receive Date: 20240701
  Receipt Date: 20240701
  Transmission Date: 20241017
  Serious: Yes (Hospitalization)
  Sender: Alvotech
  Company Number: CA-JAMP PHARMA CORPORATION-2022-JAM-CA-00815

PATIENT
  Age: 22 Year
  Sex: Female
  Weight: 105 kg

DRUGS (5)
  1. SIMLANDI [Suspect]
     Active Substance: ADALIMUMAB-RYVK
     Indication: Crohn^s disease
     Dosage: 40 MG, WEEKLY
     Route: 058
  2. SIMLANDI [Suspect]
     Active Substance: ADALIMUMAB-RYVK
     Indication: Crohn^s disease
     Dosage: 40 MG, WEEKLY
     Route: 058
  3. SIMLANDI [Suspect]
     Active Substance: ADALIMUMAB-RYVK
     Indication: Crohn^s disease
     Dosage: 40 MILLIGRAM, EVERY WEEK
     Route: 058
     Dates: start: 20220916
  4. SIMLANDI [Suspect]
     Active Substance: ADALIMUMAB-RYVK
     Indication: Crohn^s disease
     Dosage: 40 MG, EVERY 7 DAYS
     Route: 065
     Dates: start: 202309
  5. SIMLANDI [Suspect]
     Active Substance: ADALIMUMAB-RYVK
     Indication: Crohn^s disease
     Dosage: 40 MILLIGRAM, EVERY 10 DAYS
     Route: 065
     Dates: start: 202309

REACTIONS (12)
  - Hysteroscopy [Recovered/Resolved]
  - Condition aggravated [Unknown]
  - Fall [Not Recovered/Not Resolved]
  - Skin lesion [Not Recovered/Not Resolved]
  - Urinary tract infection [Recovered/Resolved]
  - Sinusitis [Not Recovered/Not Resolved]
  - Cough [Not Recovered/Not Resolved]
  - Abdominal pain upper [Recovered/Resolved]
  - Abdominal pain [Recovered/Resolved]
  - Diarrhoea [Not Recovered/Not Resolved]
  - Therapeutic product effect incomplete [Not Recovered/Not Resolved]
  - Body temperature increased [Not Recovered/Not Resolved]

NARRATIVE: CASE EVENT DATE: 20230101
